FAERS Safety Report 9935174 (Version 2)
Quarter: 2014Q1

REPORT INFORMATION
  Report Type: Spontaneous
  Country: US (occurrence: US)
  Receive Date: 20140228
  Receipt Date: 20140305
  Transmission Date: 20141002
  Serious: Yes (Hospitalization, Other)
  Sender: FDA-Public Use
  Company Number: US-JNJFOC-20140211973

PATIENT
  Age: 57 Year
  Sex: Male

DRUGS (7)
  1. DOXORUBICIN [Suspect]
     Indication: MANTLE CELL LYMPHOMA
     Route: 042
  2. BENDAMUSTINE [Suspect]
     Indication: MANTLE CELL LYMPHOMA
     Route: 042
  3. RITUXIMAB [Suspect]
     Indication: MANTLE CELL LYMPHOMA
     Route: 065
  4. CYCLOPHOSPHAMIDE [Suspect]
     Indication: MANTLE CELL LYMPHOMA
     Route: 065
  5. VINCRISTINE [Suspect]
     Indication: MANTLE CELL LYMPHOMA
     Route: 065
  6. PREDNISONE [Suspect]
     Indication: MANTLE CELL LYMPHOMA
     Route: 065
  7. BORTEZOMIB [Suspect]
     Indication: MANTLE CELL LYMPHOMA
     Route: 065

REACTIONS (8)
  - Mantle cell lymphoma [Unknown]
  - Small intestinal obstruction [Unknown]
  - Peritonitis [Unknown]
  - Clostridium difficile infection [Unknown]
  - Streptococcal infection [Unknown]
  - Septic shock [Unknown]
  - Abdominal abscess [Unknown]
  - Off label use [Unknown]
